FAERS Safety Report 8608980-5 (Version None)
Quarter: 2012Q3

REPORT INFORMATION
  Report Type: 
  Country: None (occurrence: None)
  Receive Date: 20120821
  Receipt Date: 20120813
  Transmission Date: 20120928
  Serious: Yes (Hospitalization, Congenital Anomaly)
  Sender: FDA-Public Use
  Company Number: US-GLAXOSMITHKLINE-A0953432A

PATIENT
  Sex: Male

DRUGS (6)
  1. PAXIL CR [Suspect]
     Indication: ANXIETY
     Route: 064
  2. VITAMIN TAB [Concomitant]
     Route: 064
  3. NORVASC [Concomitant]
     Route: 064
  4. LOTREL [Concomitant]
  5. PAXIL [Suspect]
     Indication: DEPRESSION
     Dosage: 30MG PER DAY
     Route: 064
  6. INSULIN [Concomitant]
     Route: 064

REACTIONS (5)
  - VENTRICULAR SEPTAL DEFECT [None]
  - MITRAL VALVE INCOMPETENCE [None]
  - TRICUSPID VALVE INCOMPETENCE [None]
  - AORTIC VALVE PROLAPSE [None]
  - FOETAL EXPOSURE DURING PREGNANCY [None]
